FAERS Safety Report 15785123 (Version 6)
Quarter: 2019Q3

REPORT INFORMATION
  Report Type: Spontaneous
  Country: US (occurrence: US)
  Receive Date: 20190103
  Receipt Date: 20190925
  Transmission Date: 20191004
  Serious: No
  Sender: FDA-Public Use
  Company Number: US-PFIZER INC-2019001502

PATIENT
  Age: 61 Year
  Sex: Female

DRUGS (3)
  1. IBRANCE [Suspect]
     Active Substance: PALBOCICLIB
     Indication: BREAST CANCER FEMALE
     Dosage: 100 MG, CYCLIC (TAKE ONCE DAILY FOR 3 WEEKS, FOLLOWED BY ONE WEEK REST TAKE WITH FOOD SWALLOW WHOLE)
     Route: 048
     Dates: start: 20181101, end: 201811
  2. IBRANCE [Suspect]
     Active Substance: PALBOCICLIB
     Dosage: 125 MG, CYCLIC [TAKE ONE CAPSULE BY MOUTH DAILY FOR 3 WEEKS FOLLOWED BY ONE WEEK REST]
     Route: 048
     Dates: start: 20181126
  3. IBRANCE [Suspect]
     Active Substance: PALBOCICLIB
     Dosage: 100 MG, CYCLIC (ONCE DAILY FOR 3 WEEKS, FOLLOWED BY ONE WEEK REST)
     Dates: end: 201908

REACTIONS (3)
  - Fatigue [Unknown]
  - Headache [Unknown]
  - Neoplasm progression [Unknown]

NARRATIVE: CASE EVENT DATE: 201812
